FAERS Safety Report 23347541 (Version 4)
Quarter: 2025Q1

REPORT INFORMATION
  Report Type: Spontaneous
  Country: JP (occurrence: JP)
  Receive Date: 20231228
  Receipt Date: 20250331
  Transmission Date: 20250409
  Serious: Yes (Life-Threatening, Hospitalization, Other)
  Sender: ALEXION PHARMACEUTICALS
  Company Number: 2023A291593

PATIENT
  Age: 87 Year
  Weight: 45 kg

DRUGS (10)
  1. LOKELMA [Suspect]
     Active Substance: SODIUM ZIRCONIUM CYCLOSILICATE
     Indication: Hyperkalaemia
     Dosage: 10 GRAM, TID
  2. LOKELMA [Suspect]
     Active Substance: SODIUM ZIRCONIUM CYCLOSILICATE
     Dosage: 5 GRAM, TID
  3. AMINO ACIDS, SOURCE UNSPECIFIED [Concomitant]
     Active Substance: AMINO ACIDS, SOURCE UNSPECIFIED
  4. URSODIOL [Concomitant]
     Active Substance: URSODIOL
  5. TELMISARTAN [Concomitant]
     Active Substance: TELMISARTAN
  6. NITROFURANTOIN [Concomitant]
     Active Substance: NITROFURANTOIN
  7. VONOPRAZAN FUMARATE [Concomitant]
     Active Substance: VONOPRAZAN FUMARATE
  8. AZOSEMIDE [Concomitant]
     Active Substance: AZOSEMIDE
  9. TOLVAPTAN [Concomitant]
     Active Substance: TOLVAPTAN
  10. AMINO ACIDS, SOURCE UNSPECIFIED [Concomitant]
     Active Substance: AMINO ACIDS, SOURCE UNSPECIFIED

REACTIONS (8)
  - Overdose [Unknown]
  - Gastrointestinal injury [Recovering/Resolving]
  - Hypokalaemia [Recovered/Resolved]
  - Constipation [Recovered/Resolved with Sequelae]
  - Large intestine perforation [Recovered/Resolved with Sequelae]
  - Lacunar infarction [Recovering/Resolving]
  - Acute myocardial infarction [Recovering/Resolving]
  - Acute kidney injury [Recovering/Resolving]
